FAERS Safety Report 9417006 (Version 1)
Quarter: 2013Q3

REPORT INFORMATION
  Report Type: Spontaneous
  Country: AU (occurrence: AU)
  Receive Date: 20130724
  Receipt Date: 20130724
  Transmission Date: 20140515
  Serious: Yes (Hospitalization, Other)
  Sender: FDA-Public Use
  Company Number: AU-EISAI INC-E3810-06548-SPO-AU

PATIENT
  Sex: Male

DRUGS (5)
  1. PARIET (RABEPRAZOLE) [Suspect]
     Indication: PRODUCT USED FOR UNKNOWN INDICATION
     Dosage: UNKNOWN
     Route: 065
  2. DUROGESIC [Suspect]
     Indication: PAIN
     Dosage: UNKNOWN
     Route: 062
     Dates: end: 201307
  3. PANAMAX [Concomitant]
     Indication: PAIN
  4. NATROLEX [Concomitant]
  5. CRESTOR [Concomitant]

REACTIONS (2)
  - Spinal fracture [Unknown]
  - Hallucination [Recovering/Resolving]
